FAERS Safety Report 17275434 (Version 1)
Quarter: 2020Q1

REPORT INFORMATION
  Report Type: Spontaneous
  Country: US (occurrence: US)
  Receive Date: 20200116
  Receipt Date: 20200116
  Transmission Date: 20200409
  Serious: Yes (Hospitalization)
  Sender: FDA-Public Use
  Company Number: US-ASTRAZENECA-2020SE05764

PATIENT
  Age: 502 Day
  Sex: Male

DRUGS (14)
  1. FUROSEMIDE. [Concomitant]
     Active Substance: FUROSEMIDE
  2. IBUPROFEN. [Concomitant]
     Active Substance: IBUPROFEN
  3. METOLAZONE. [Concomitant]
     Active Substance: METOLAZONE
  4. ALBUTEROL. [Concomitant]
     Active Substance: ALBUTEROL
  5. LEVOTHYROXIN [Concomitant]
     Active Substance: LEVOTHYROXINE
  6. SYNAGIS [Suspect]
     Active Substance: PALIVIZUMAB
     Indication: HYPOXIA
     Route: 030
     Dates: start: 20181228
  7. EUCERIN [Concomitant]
     Active Substance: ENSULIZOLE\EUCERIN\OCTINOXATE\OCTISALATE\TITANIUM DIOXIDE\ZINC OXIDE
  8. FLOVENT HFA [Concomitant]
     Active Substance: FLUTICASONE PROPIONATE
  9. FAMOTIDINE. [Concomitant]
     Active Substance: FAMOTIDINE
  10. ASPIRIN. [Concomitant]
     Active Substance: ASPIRIN
  11. POLY-VI-SOL [Concomitant]
     Active Substance: VITAMINS
  12. SOD CHLOR NEB 7% [Concomitant]
  13. A-HYDROCORT [Concomitant]
     Active Substance: HYDROCORTISONE SODIUM SUCCINATE
  14. PROPRANOLOL [Concomitant]
     Active Substance: PROPRANOLOL HYDROCHLORIDE

REACTIONS (1)
  - Respiratory syncytial virus infection [Recovered/Resolved]

NARRATIVE: CASE EVENT DATE: 20191215
